FAERS Safety Report 6203271-4 (Version None)
Quarter: 2009Q2

REPORT INFORMATION
  Report Type: 
  Country: None (occurrence: None)
  Receive Date: 20090522
  Receipt Date: 20090522
  Transmission Date: 20091009
  Serious: No
  Sender: FDA-Public Use
  Company Number: None

PATIENT
  Sex: Male
  Weight: 110 kg

DRUGS (2)
  1. CASODEX [Suspect]
     Dosage: 50 MG
  2. ZOLADEX [Suspect]
     Dosage: 3.6 MG

REACTIONS (1)
  - DEATH [None]
